FAERS Safety Report 6430255-3 (Version None)
Quarter: 2009Q4

REPORT INFORMATION
  Report Type: 
  Country: None (occurrence: None)
  Receive Date: 20091106
  Receipt Date: 20091102
  Transmission Date: 20100525
  Serious: Yes (Hospitalization)
  Sender: FDA-Public Use
  Company Number: FR-ROCHE-666159

PATIENT
  Sex: Female

DRUGS (3)
  1. VALIUM [Suspect]
     Indication: DRUG USE FOR UNKNOWN INDICATION
     Dosage: FREQUENCY: SINGLE INTAKE
     Route: 048
     Dates: start: 20090422, end: 20090422
  2. VALIUM [Suspect]
     Route: 048
  3. TERCIAN [Suspect]
     Indication: DRUG USE FOR UNKNOWN INDICATION
     Dosage: FREQUENCY: SINGLE INTAKE
     Route: 048
     Dates: start: 20090422, end: 20090422

REACTIONS (1)
  - COMA [None]
